FAERS Safety Report 4568169-6 (Version None)
Quarter: 2005Q1

REPORT INFORMATION
  Report Type: 
  Country: None (occurrence: None)
  Receive Date: 20050202
  Receipt Date: 20050127
  Transmission Date: 20050727
  Serious: Yes (Death, Hospitalization)
  Sender: FDA-Public Use
  Company Number: DE-MERCK-0501DEU00270

PATIENT
  Age: 57 Year
  Sex: Male

DRUGS (3)
  1. VIOXX [Suspect]
     Indication: ANALGESIC THERAPY
     Route: 048
     Dates: start: 20030101
  2. MORPHINE [Concomitant]
     Indication: ANALGESIC THERAPY
     Route: 065
     Dates: start: 20030101
  3. [THERAPY UNSPECIFIED] [Concomitant]
     Route: 065

REACTIONS (5)
  - DEATH [None]
  - DELUSION [None]
  - FEELING ABNORMAL [None]
  - LUNG DISORDER [None]
  - MYOCARDIAL INFARCTION [None]
